FAERS Safety Report 18495214 (Version 1)
Quarter: 2020Q4

REPORT INFORMATION
  Report Type: Spontaneous
  Country: US (occurrence: US)
  Receive Date: 20201111
  Receipt Date: 20201111
  Transmission Date: 20210114
  Serious: Yes (Hospitalization)
  Sender: FDA-Public Use
  Company Number: None

PATIENT
  Age: 60 Year
  Sex: Male
  Weight: 83.52 kg

DRUGS (15)
  1. BRAFTOVI [Suspect]
     Active Substance: ENCORAFENIB
     Indication: MALIGNANT MELANOMA
     Route: 048
     Dates: start: 20200123, end: 20201111
  2. HYDROCORTISONE 2.5% [Concomitant]
     Active Substance: HYDROCORTISONE
  3. PANTOPRAZOLE 40MG [Concomitant]
     Active Substance: PANTOPRAZOLE SODIUM
  4. OXYCODONE 7.5MG [Concomitant]
     Active Substance: OXYCODONE HYDROCHLORIDE
  5. GABAPENTIN. [Concomitant]
     Active Substance: GABAPENTIN
  6. LISINOPRIL. [Concomitant]
     Active Substance: LISINOPRIL
  7. ONDANSETRON 8MG [Concomitant]
     Active Substance: ONDANSETRON
  8. MEKTOVI [Suspect]
     Active Substance: BINIMETINIB
     Indication: MALIGNANT MELANOMA
     Route: 048
     Dates: start: 20200123, end: 20201111
  9. VERAPAMIL ER240MG [Concomitant]
  10. DIPHENHYDRAMINE 1% CREAM [Concomitant]
  11. TRIAMCINOLONE 0.5% [Concomitant]
     Active Substance: TRIAMCINOLONE
  12. VITAMIN D3 10MCG [Concomitant]
  13. SENNA LAX 8.6MG [Concomitant]
  14. TYLENOL [Concomitant]
     Active Substance: ACETAMINOPHEN
  15. ALBUTEROL HFA 90MCG/ACT [Concomitant]

REACTIONS (3)
  - Dyspepsia [None]
  - Eructation [None]
  - Intestinal obstruction [None]

NARRATIVE: CASE EVENT DATE: 20201106
